FAERS Safety Report 8740898 (Version 2)
Quarter: 2013Q4

REPORT INFORMATION
  Report Type: Spontaneous
  Country: US (occurrence: US)
  Receive Date: 20120823
  Receipt Date: 20131101
  Transmission Date: 20140711
  Serious: No
  Sender: FDA-Public Use
  Company Number: US-009507513-1208USA008424

PATIENT
  Age: 66 Year
  Sex: Female

DRUGS (2)
  1. SAPHRIS [Suspect]
     Indication: DEPRESSION
     Dosage: 10 MG, BID
     Route: 060
     Dates: start: 201112
  2. SERZONE [Concomitant]

REACTIONS (2)
  - Muscle twitching [Recovering/Resolving]
  - Dyskinesia [Recovering/Resolving]
